FAERS Safety Report 7031626-7 (Version None)
Quarter: 2010Q4

REPORT INFORMATION
  Report Type: 
  Country: None (occurrence: None)
  Receive Date: 20101006
  Receipt Date: 20101006
  Transmission Date: 20110411
  Serious: Yes (Other)
  Sender: FDA-Public Use
  Company Number: None

PATIENT
  Age: 43 Year
  Sex: Male

DRUGS (4)
  1. PAROXETINE HCL [Suspect]
     Dosage: CURRENTLY ONCE A DAY, ORALLY FOR PAST FEW WEEKS
     Route: 048
  2. KALETRA [Concomitant]
  3. TRUVADA [Concomitant]
  4. ANOTHER ANTI-VIRAL MEDICATION [Concomitant]

REACTIONS (3)
  - DISORIENTATION [None]
  - FATIGUE [None]
  - UNEVALUABLE EVENT [None]
